FAERS Safety Report 6109483-2 (Version None)
Quarter: 2009Q1

REPORT INFORMATION
  Report Type: 
  Country: None (occurrence: None)
  Receive Date: 20090310
  Receipt Date: 20090302
  Transmission Date: 20090719
  Serious: Yes (Other)
  Sender: FDA-Public Use
  Company Number: US-JNJFOC-20081004717

PATIENT
  Sex: Male
  Weight: 83.01 kg

DRUGS (4)
  1. REMICADE [Suspect]
     Dosage: 2ND DOSE
     Route: 042
  2. REMICADE [Suspect]
     Indication: CROHN'S DISEASE
     Dosage: 1ST DOSE
     Route: 042
  3. MERCAPTOPURINE [Concomitant]
  4. PREDNISONE [Concomitant]

REACTIONS (7)
  - ARTHRALGIA [None]
  - BONE PAIN [None]
  - BRAIN NEOPLASM [None]
  - HEADACHE [None]
  - INFLUENZA [None]
  - NEOPLASM [None]
  - SEBORRHOEIC KERATOSIS [None]
